FAERS Safety Report 7231498-1 (Version None)
Quarter: 2011Q1

REPORT INFORMATION
  Report Type: 
  Country: None (occurrence: None)
  Receive Date: 20110107
  Receipt Date: 20100315
  Transmission Date: 20110831
  Serious: Yes (Life-Threatening)
  Sender: FDA-Public Use
  Company Number: AMI0019223

PATIENT
  Age: 83 Year
  Sex: Male

DRUGS (3)
  1. PRAVASTATIN SODIUM [Concomitant]
  2. TIMOPTIC-XE [Suspect]
     Indication: GLAUCOMA
     Dosage: 046
     Dates: start: 20090101, end: 20100118
  3. PHENPROCOUMON [Concomitant]

REACTIONS (22)
  - HYPOTENSION [None]
  - NAUSEA [None]
  - EYE IRRITATION [None]
  - HYPERTENSION [None]
  - MYALGIA [None]
  - GASTROINTESTINAL DISORDER [None]
  - THROAT IRRITATION [None]
  - DYSPNOEA [None]
  - ERUCTATION [None]
  - DEPRESSION [None]
  - RASH [None]
  - MUSCULAR WEAKNESS [None]
  - AGGRESSION [None]
  - AMNESIA [None]
  - FATIGUE [None]
  - ARRHYTHMIA [None]
  - INSOMNIA [None]
  - FEELING COLD [None]
  - HEADACHE [None]
  - GASTRIC DISORDER [None]
  - PRURITUS [None]
  - COUGH [None]
